FAERS Safety Report 22332345 (Version 1)
Quarter: 2023Q2

REPORT INFORMATION
  Report Type: Spontaneous
  Country: US (occurrence: None)
  Receive Date: 20230516
  Receipt Date: 20230516
  Transmission Date: 20230722
  Serious: Yes (Life-Threatening)
  Sender: FDA-Public Use
  Company Number: None

PATIENT
  Age: 56 Year
  Sex: Female

DRUGS (2)
  1. LUMASON [Suspect]
     Active Substance: SULFUR HEXAFLUORIDE
     Indication: Ultrasound scan
     Dates: start: 20230420, end: 20230420
  2. LUMASON [Concomitant]
     Active Substance: SULFUR HEXAFLUORIDE
     Dates: start: 20230420, end: 20230420

REACTIONS (4)
  - Contrast media reaction [None]
  - Dyspnoea [None]
  - Erythema [None]
  - Breath sounds abnormal [None]

NARRATIVE: CASE EVENT DATE: 20230420
